FAERS Safety Report 10112311 (Version 2)
Quarter: 2014Q2

REPORT INFORMATION
  Report Type: Spontaneous
  Country: SI (occurrence: SI)
  Receive Date: 20140425
  Receipt Date: 20140501
  Transmission Date: 20141212
  Serious: Yes (Disabling)
  Sender: FDA-Public Use
  Company Number: PHHY2014SI048293

PATIENT
  Sex: Female

DRUGS (3)
  1. OSPAMOX [Suspect]
     Indication: SINUSITIS
     Dosage: 1000 MG, Q12H
     Dates: start: 20140223, end: 20140304
  2. HICONCIL [Suspect]
  3. AMOKSIKLAV [Concomitant]

REACTIONS (22)
  - Psychogenic pain disorder [Unknown]
  - Pain [Unknown]
  - Oropharyngeal pain [Unknown]
  - Cough [Unknown]
  - Dysphagia [Unknown]
  - General physical health deterioration [Recovering/Resolving]
  - Weight decreased [Recovering/Resolving]
  - Haemorrhage [Unknown]
  - Pharyngeal erythema [Unknown]
  - Tongue discolouration [Unknown]
  - Ageusia [Not Recovered/Not Resolved]
  - Petechiae [Unknown]
  - Lip oedema [Unknown]
  - Oral pustule [Recovered/Resolved]
  - Tongue oedema [Unknown]
  - Pharyngeal oedema [Unknown]
  - Tongue exfoliation [Recovered/Resolved]
  - Dysgeusia [Not Recovered/Not Resolved]
  - Swollen tongue [Unknown]
  - Lip swelling [Unknown]
  - Oral mucosal erythema [Unknown]
  - Drug administration error [Recovering/Resolving]
